FAERS Safety Report 23972940 (Version 1)
Quarter: 2024Q2

REPORT INFORMATION
  Report Type: Spontaneous
  Country: US (occurrence: US)
  Receive Date: 20240613
  Receipt Date: 20240613
  Transmission Date: 20240715
  Serious: No
  Sender: FDA-Public Use
  Company Number: US-HALEON-2181008

PATIENT
  Age: 71 Year
  Sex: Female

DRUGS (3)
  1. PARODONTAX COMPLETE PROTECTION [Suspect]
     Active Substance: STANNOUS FLUORIDE
     Indication: Mouth haemorrhage
     Dosage: EXPDATE:20251130
  2. PARODONTAX ACTIVE GUM HEALTH DAILY MOUTHWASH BREATH FRESHENER [Suspect]
     Active Substance: CETYLPYRIDINIUM CHLORIDE
     Indication: Mouth haemorrhage
     Dosage: EXPDATE:20251231
  3. PARODONTAX ACTIVE GUM HEALTH DAILY MOUTHWASH BREATH FRESHENER [Suspect]
     Active Substance: CETYLPYRIDINIUM CHLORIDE
     Dosage: EXPDATE:20251031

REACTIONS (1)
  - Off label use [Recovered/Resolved]
